FAERS Safety Report 8926940 (Version 1)
Quarter: 2012Q4

REPORT INFORMATION
  Report Type: 
  Country: PT (occurrence: PT)
  Receive Date: 20121127
  Receipt Date: 20121127
  Transmission Date: 20130627
  Serious: Yes (Other)
  Sender: FDA-Public Use
  Company Number: PT-ROCHE-1160658

PATIENT
  Age: 11 Year
  Sex: Male

DRUGS (2)
  1. XOLAIR [Suspect]
     Indication: ASTHMA
     Route: 058
     Dates: start: 201009, end: 201111
  2. XOLAIR [Suspect]
     Indication: FOOD ALLERGY

REACTIONS (1)
  - Oral allergy syndrome [Not Recovered/Not Resolved]
